FAERS Safety Report 7339735-X (Version None)
Quarter: 2011Q1

REPORT INFORMATION
  Report Type: 
  Country: None (occurrence: None)
  Receive Date: 20110303
  Receipt Date: 20110303
  Transmission Date: 20110831
  Serious: Yes (Other)
  Sender: FDA-Public Use
  Company Number: None

PATIENT
  Age: 83 Year
  Sex: Male
  Weight: 68.0396 kg

DRUGS (10)
  1. HYDRALAZINE HCL [Suspect]
     Indication: HYPERTENSION
     Dosage: 25MG TABS 2 QAM, 1 Q NOON, 1 PO
     Route: 048
     Dates: start: 20110201, end: 20110204
  2. FINASTERIDE [Concomitant]
  3. ALLOPURINOL [Concomitant]
  4. LOSARTAN POTASSIUM [Concomitant]
  5. SYNTHROID [Concomitant]
  6. LOVAZA [Concomitant]
  7. ALENDRONATE [Concomitant]
  8. CRESTOR [Concomitant]
  9. COLCRYS [Concomitant]
  10. CHLORHEXIDINE GLUCONATE [Concomitant]

REACTIONS (3)
  - BLOOD PRESSURE INCREASED [None]
  - NO THERAPEUTIC RESPONSE [None]
  - PRODUCT SUBSTITUTION ISSUE [None]
